FAERS Safety Report 16532319 (Version 3)
Quarter: 2019Q4

REPORT INFORMATION
  Report Type: Spontaneous
  Country: US (occurrence: US)
  Receive Date: 20190704
  Receipt Date: 20191217
  Transmission Date: 20200122
  Serious: Yes (Hospitalization)
  Sender: FDA-Public Use
  Company Number: US-PFIZER INC-2019282847

PATIENT
  Age: 58 Year
  Sex: Female
  Weight: 121.9 kg

DRUGS (1)
  1. IBRANCE [Suspect]
     Active Substance: PALBOCICLIB
     Indication: BREAST CANCER METASTATIC
     Dosage: 125 MG, CYCLIC (DAYS 1-21 Q28 DAYS)
     Route: 048
     Dates: start: 20190529

REACTIONS (6)
  - Alopecia [Unknown]
  - Bronchitis [Unknown]
  - Product dose omission [Unknown]
  - Sneezing [Unknown]
  - Intestinal obstruction [Unknown]
  - Nasal pruritus [Unknown]
